FAERS Safety Report 7009922-9 (Version None)
Quarter: 2010Q3

REPORT INFORMATION
  Report Type: 
  Country: None (occurrence: None)
  Receive Date: 20100921
  Receipt Date: 20100902
  Transmission Date: 20110219
  Serious: Yes (Hospitalization)
  Sender: FDA-Public Use
  Company Number: 2009003922

PATIENT
  Age: 71 Year
  Sex: Male

DRUGS (9)
  1. ERLOTINIB HYDROCHLORIDE [Suspect]
     Indication: MYELODYSPLASTIC SYNDROME
     Dosage: (150 MG, QD), ORAL
     Route: 048
     Dates: start: 20091130
  2. REVLIMID [Suspect]
     Indication: PRODUCT USED FOR UNKNOWN INDICATION
     Dates: start: 20060701, end: 20060901
  3. METFORMIN [Concomitant]
  4. HUMULIN (NOVOLIN 20/80) [Concomitant]
  5. TARKA (UDRAMIL) [Concomitant]
  6. VYTORIN [Concomitant]
  7. AMARYL [Concomitant]
  8. METOPROLOL [Concomitant]
  9. AZACITIDINE [Concomitant]

REACTIONS (16)
  - ARTERIAL THROMBOSIS [None]
  - ARTERIAL THROMBOSIS LIMB [None]
  - BACTERIAL INFECTION [None]
  - BLOOD BILIRUBIN INCREASED [None]
  - BLOOD POTASSIUM INCREASED [None]
  - CHOLELITHIASIS [None]
  - COUGH [None]
  - DECREASED APPETITE [None]
  - DEVICE RELATED INFECTION [None]
  - DYSPNOEA [None]
  - FATIGUE [None]
  - PLATELET COUNT DECREASED [None]
  - PNEUMONIA [None]
  - PROTEIN TOTAL INCREASED [None]
  - REFUSAL OF TREATMENT BY PATIENT [None]
  - STAPHYLOCOCCAL INFECTION [None]
